FAERS Safety Report 20838295 (Version 1)
Quarter: 2022Q2

REPORT INFORMATION
  Report Type: Report from Study
  Country: US (occurrence: US)
  Receive Date: 20220517
  Receipt Date: 20220517
  Transmission Date: 20220721
  Serious: Yes (Hospitalization)
  Sender: FDA-Public Use
  Company Number: US-VERTEX PHARMACEUTICALS-2021-005205

PATIENT
  Sex: Female
  Weight: 44 kg

DRUGS (3)
  1. TRIKAFTA [Suspect]
     Active Substance: ELEXACAFTOR\IVACAFTOR\TEZACAFTOR
     Indication: Cystic fibrosis
     Dosage: 2 ORANGE TABS IN AM AND 1 TAB IN PM
     Route: 048
     Dates: start: 20191206
  2. MELATONIN [Concomitant]
     Active Substance: MELATONIN
     Dosage: 1 MG
  3. IBU [Concomitant]
     Active Substance: IBUPROFEN
     Dosage: 200 MG

REACTIONS (3)
  - Mental impairment [Unknown]
  - Gastrointestinal disorder [Unknown]
  - Pulmonary function test decreased [Unknown]
